FAERS Safety Report 5423627-7 (Version None)
Quarter: 2007Q3

REPORT INFORMATION
  Report Type: 
  Country: None (occurrence: None)
  Receive Date: 20070823
  Receipt Date: 20070814
  Transmission Date: 20080115
  Serious: Yes (Death, Hospitalization, Other)
  Sender: FDA-Public Use
  Company Number: US-AMGEN-US235912

PATIENT
  Sex: Male

DRUGS (8)
  1. ENBREL [Suspect]
     Indication: PSORIASIS
     Route: 058
     Dates: start: 20070315, end: 20070710
  2. CYCLOSPORINE [Concomitant]
     Route: 065
     Dates: start: 20070411
  3. ZETIA [Concomitant]
     Route: 065
  4. ASPIRIN [Concomitant]
  5. VITAMIN CAP [Concomitant]
     Route: 042
  6. PRILOSEC [Concomitant]
  7. THIAMINE HCL [Concomitant]
  8. FOLIC ACID [Concomitant]

REACTIONS (5)
  - ABASIA [None]
  - DEATH [None]
  - HYPOGLYCAEMIA [None]
  - MUSCULAR WEAKNESS [None]
  - PAIN IN EXTREMITY [None]
